FAERS Safety Report 9464596 (Version 3)
Quarter: 2013Q4

REPORT INFORMATION
  Report Type: Spontaneous
  Country: US (occurrence: US)
  Receive Date: 20130819
  Receipt Date: 20131021
  Transmission Date: 20140711
  Serious: Yes (Death)
  Sender: FDA-Public Use
  Company Number: US-PFIZER INC-2013238322

PATIENT
  Age: 75 Year
  Sex: Female
  Weight: 39.9 kg

DRUGS (4)
  1. LYRICA [Suspect]
     Indication: HYPOAESTHESIA
     Dosage: 200 MG, 2X/DAY
     Dates: start: 20130604, end: 2013
  2. LYRICA [Suspect]
     Indication: FIBROMYALGIA
     Dosage: 150 MG, 2X/DAY
     Dates: start: 2013, end: 2013
  3. LYRICA [Suspect]
     Dosage: 50 MG, 2X/DAY
     Dates: start: 2013, end: 2013
  4. LYRICA [Suspect]
     Dosage: 50 MG, 1X/DAY
     Dates: start: 2013

REACTIONS (9)
  - Off label use [Fatal]
  - Intentional drug misuse [Fatal]
  - Hepatic cancer [Fatal]
  - Drug ineffective [Unknown]
  - Hypoaesthesia oral [Unknown]
  - Drug withdrawal syndrome [Unknown]
  - Dysgeusia [Unknown]
  - Tongue biting [Unknown]
  - Bite [Unknown]
